FAERS Safety Report 4988610-4 (Version None)
Quarter: 2006Q2

REPORT INFORMATION
  Report Type: 
  Country: None (occurrence: None)
  Receive Date: 20060502
  Receipt Date: 20051018
  Transmission Date: 20061013
  Serious: Yes (Other)
  Sender: FDA-Public Use
  Company Number: US-ROCHE-421901

PATIENT
  Sex: Male
  Weight: 3.4 kg

DRUGS (2)
  1. ACCUTANE [Suspect]
     Indication: DRUG USE FOR UNKNOWN INDICATION
     Dates: start: 20040315, end: 20041015
  2. ORAL CONTRACEPTION [Concomitant]
     Indication: CONTRACEPTION
     Dates: end: 20041215

REACTIONS (4)
  - ARRESTED LABOUR [None]
  - CAESAREAN SECTION [None]
  - DRUG EXPOSURE DURING PREGNANCY [None]
  - PREGNANCY [None]
